FAERS Safety Report 21307312 (Version 1)
Quarter: 2022Q3

REPORT INFORMATION
  Report Type: Spontaneous
  Country: US (occurrence: None)
  Receive Date: 20220907
  Receipt Date: 20220907
  Transmission Date: 20221027
  Serious: Yes (Other)
  Sender: FDA-Public Use
  Company Number: None

PATIENT
  Age: 69 Year
  Sex: Female
  Weight: 94.5 kg

DRUGS (7)
  1. EVUSHELD [Suspect]
     Active Substance: CILGAVIMAB\TIXAGEVIMAB
     Indication: COVID-19 prophylaxis
     Dates: start: 20220906, end: 20220906
  2. EVUSHELD [Suspect]
     Active Substance: CILGAVIMAB\TIXAGEVIMAB
     Indication: COVID-19 prophylaxis
  3. FLECAINIDE [Concomitant]
     Active Substance: FLECAINIDE
  4. ENBREL [Concomitant]
     Active Substance: ETANERCEPT
  5. LIPITOR [Concomitant]
     Active Substance: ATORVASTATIN CALCIUM
  6. ELIQUIS [Concomitant]
     Active Substance: APIXABAN
  7. ATIVAN [Concomitant]
     Active Substance: LORAZEPAM

REACTIONS (5)
  - Swelling [None]
  - Erythema [None]
  - Pruritus [None]
  - Mouth swelling [None]
  - Pharyngeal swelling [None]

NARRATIVE: CASE EVENT DATE: 20220906
